FAERS Safety Report 4307593-3 (Version None)
Quarter: 2004Q1

REPORT INFORMATION
  Report Type: 
  Country: None (occurrence: None)
  Receive Date: 20040226
  Receipt Date: 20040211
  Transmission Date: 20041129
  Serious: Yes (Life-Threatening)
  Sender: FDA-Public Use
  Company Number: TNZFR200400019

PATIENT
  Age: 68 Year
  Sex: Female
  Weight: 67 kg

DRUGS (6)
  1. INNOHEP [Suspect]
     Indication: PHLEBITIS
     Dosage: 10000 IU (10000 IU, IN IN 1
     Dates: start: 20031113, end: 20031126
  2. ALLOPURINOL [Concomitant]
  3. PAROXETINE HCL [Concomitant]
  4. CAPTOPRIL [Concomitant]
  5. HYDREA (HYDROXYCARBAMIDE) CAPSULES [Concomitant]
  6. VERCYTE [Concomitant]

REACTIONS (5)
  - DIALYSIS [None]
  - HAEMATOMA [None]
  - HAEMOGLOBIN DECREASED [None]
  - RENAL FAILURE ACUTE [None]
  - SHOCK [None]
